FAERS Safety Report 13995264 (Version 1)
Quarter: 2017Q3

REPORT INFORMATION
  Report Type: Spontaneous
  Country: GB (occurrence: GB)
  Receive Date: 20170921
  Receipt Date: 20170921
  Transmission Date: 20171128
  Serious: Yes (Other)
  Sender: FDA-Public Use
  Company Number: GB-SUN PHARMACEUTICAL INDUSTRIES LTD-2017RR-150259

PATIENT
  Age: 63 Year
  Sex: Female
  Weight: 82.55 kg

DRUGS (3)
  1. COCODAMOL [Concomitant]
     Active Substance: ACETAMINOPHEN\CODEINE PHOSPHATE
     Indication: PRODUCT USED FOR UNKNOWN INDICATION
     Dosage: OCCASIONAL.
     Route: 065
  2. CLARITHROMYCIN. [Suspect]
     Active Substance: CLARITHROMYCIN
     Indication: LOWER RESPIRATORY TRACT INFECTION
     Dosage: 500 MG
     Route: 048
     Dates: start: 20170807, end: 20170808
  3. DOXYCYCLINE. [Suspect]
     Active Substance: DOXYCYCLINE
     Indication: LOWER RESPIRATORY TRACT INFECTION
     Dosage: 100 MG
     Route: 048
     Dates: start: 20170808, end: 20170815

REACTIONS (4)
  - Hypoacusis [Recovered/Resolved]
  - Dysphagia [Unknown]
  - Tinnitus [Recovered/Resolved]
  - Oesophageal pain [Unknown]

NARRATIVE: CASE EVENT DATE: 20170808
